FAERS Safety Report 15775067 (Version 1)
Quarter: 2018Q4

REPORT INFORMATION
  Report Type: Spontaneous
  Country: CA (occurrence: CA)
  Receive Date: 20181231
  Receipt Date: 20181231
  Transmission Date: 20190205
  Serious: Yes (Other)
  Sender: FDA-Public Use
  Company Number: CA-AMGEN-CANSP2018185523

PATIENT
  Age: 54 Year
  Sex: Female

DRUGS (11)
  1. EPIRUBICIN [Concomitant]
     Active Substance: EPIRUBICIN
     Indication: OESTROGEN RECEPTOR POSITIVE BREAST CANCER
     Dosage: UNK
  2. CALCIUM [Concomitant]
     Active Substance: CALCIUM
     Dosage: 500 MG, QD
  3. VITAMIN D3 [Concomitant]
     Active Substance: CHOLECALCIFEROL
     Dosage: 400 IU, QD
  4. ARIMIDEX [Concomitant]
     Active Substance: ANASTROZOLE
     Indication: OESTROGEN RECEPTOR POSITIVE BREAST CANCER
     Dosage: UNK
  5. XGEVA [Suspect]
     Active Substance: DENOSUMAB
     Indication: OESTROGEN RECEPTOR POSITIVE BREAST CANCER
     Dosage: 120 MG, QMO
     Route: 058
     Dates: start: 2012
  6. 5-FLUOROURACIL [Concomitant]
     Active Substance: FLUOROURACIL
     Indication: OESTROGEN RECEPTOR POSITIVE BREAST CANCER
     Dosage: UNK
  7. CYCLOPHOSPHAMIDE. [Concomitant]
     Active Substance: CYCLOPHOSPHAMIDE
     Indication: OESTROGEN RECEPTOR POSITIVE BREAST CANCER
     Dosage: UNK
  8. DOCETAXEL. [Concomitant]
     Active Substance: DOCETAXEL
     Indication: OESTROGEN RECEPTOR POSITIVE BREAST CANCER
     Dosage: UNK
     Dates: start: 2012
  9. XGEVA [Suspect]
     Active Substance: DENOSUMAB
     Dosage: 120 MG, Q3MO
     Route: 058
     Dates: end: 201702
  10. CITALOPRAM [Concomitant]
     Active Substance: CITALOPRAM HYDROBROMIDE
     Dosage: UNK
  11. TAMOXIFEN [Concomitant]
     Active Substance: TAMOXIFEN
     Indication: OESTROGEN RECEPTOR POSITIVE BREAST CANCER
     Dosage: UNK
     Dates: start: 2011, end: 2013

REACTIONS (8)
  - Constipation [Unknown]
  - Rebound effect [Unknown]
  - Asthenia [Unknown]
  - Bone pain [Unknown]
  - Hypercalcaemia [Recovered/Resolved]
  - Pain in extremity [Unknown]
  - Off label use [Unknown]
  - Diabetes insipidus [Unknown]

NARRATIVE: CASE EVENT DATE: 2017
